FAERS Safety Report 9515222 (Version 1)
Quarter: 2013Q1

REPORT INFORMATION
  Report Type: Spontaneous
  Country: US (occurrence: None)
  Receive Date: 20130305
  Receipt Date: 20130305
  Transmission Date: 20140127
  Serious: Yes (Other)
  Sender: FDA-Public Use
  Company Number: 163-21880-12113908

PATIENT
  Age: 89 Year
  Sex: Female

DRUGS (9)
  1. REVLIMID [Suspect]
     Indication: LYMPHOCYTIC LEUKAEMIA
     Route: 048
     Dates: start: 20120228
  2. ACETOMINOPHEN (PARACETAMOL) (UNKNOWN) [Concomitant]
  3. AMOXICILLIN (AMOXICILLIN) (UNKNOWN) [Concomitant]
  4. BENICAR (OLMESARTAN MEDOXOMIL) (UNKNOWN) [Concomitant]
  5. CEFTIN (CEFUROXIME AXETIL) (UNKNOWN) [Concomitant]
  6. CLONAZEPAM (CLONAZEPAM) (UNKNOWN) [Concomitant]
  7. DIOVAN (VALSARTAN) (UNKNOWN) [Concomitant]
  8. FERROUS SULFATE (FERROUS SULFATE) (UNKNOWN) [Concomitant]
  9. FUROSEMIDE (FUROSEMIDE) (UNKNOWN) [Concomitant]

REACTIONS (1)
  - Upper respiratory tract infection [None]
